FAERS Safety Report 16742027 (Version 10)
Quarter: 2019Q4

REPORT INFORMATION
  Report Type: Report from Study
  Country: JP (occurrence: JP)
  Receive Date: 20190826
  Receipt Date: 20191125
  Transmission Date: 20200122
  Serious: Yes (Death, Hospitalization)
  Sender: FDA-Public Use
  Company Number: JP-PFIZER INC-2019365770

PATIENT
  Age: 12 Year
  Sex: Male
  Weight: 28 kg

DRUGS (9)
  1. VINCRISTINE SULFATE. [Suspect]
     Active Substance: VINCRISTINE SULFATE
     Indication: HEPATOBLASTOMA
     Dosage: 1.5 MG/M2, CYCLIC
     Route: 042
     Dates: start: 20170523, end: 20180223
  2. ACETAMINOPHEN. [Concomitant]
     Active Substance: ACETAMINOPHEN
     Dosage: UNK
     Dates: start: 20190803
  3. CISPLATIN. [Suspect]
     Active Substance: CISPLATIN
     Indication: HEPATOBLASTOMA
     Dosage: 100 MG/M2, CYCLIC
     Route: 042
     Dates: start: 20170704, end: 20180208
  4. MIYA-BM [Concomitant]
     Active Substance: CLOSTRIDIUM BUTYRICUM SPORES STRAIN M-55
     Dosage: UNK
     Dates: start: 20190803
  5. DOXORUBICIN [Suspect]
     Active Substance: DOXORUBICIN
     Indication: HEPATOBLASTOMA
     Dosage: 30 MG/M2, CYCLIC
     Route: 042
     Dates: start: 20170704, end: 20180209
  6. 5-FU [Suspect]
     Active Substance: FLUOROURACIL
     Indication: HEPATOBLASTOMA
     Dosage: 600 MG/M2, CYCLIC
     Route: 042
     Dates: start: 20170523, end: 20180223
  7. CAMPTO [Suspect]
     Active Substance: IRINOTECAN
     Indication: HEPATOBLASTOMA
     Dosage: 50 MG/M2, CYCLIC
     Route: 041
     Dates: start: 20170523, end: 20180223
  8. TEMSIROLIMUS. [Suspect]
     Active Substance: TEMSIROLIMUS
     Indication: HEPATOBLASTOMA
     Dosage: 35 MG/M2, CYCLIC
     Route: 041
     Dates: start: 20170523, end: 20170526
  9. DOMPERIDONE [Concomitant]
     Active Substance: DOMPERIDONE
     Dosage: UNK
     Dates: start: 20190803

REACTIONS (2)
  - Malignant melanoma [Fatal]
  - Second primary malignancy [Fatal]

NARRATIVE: CASE EVENT DATE: 20190804
